FAERS Safety Report 13485117 (Version 1)
Quarter: 2017Q2

REPORT INFORMATION
  Report Type: Spontaneous
  Country: FR (occurrence: FR)
  Receive Date: 20170425
  Receipt Date: 20170425
  Transmission Date: 20170830
  Serious: Yes (Hospitalization)
  Sender: FDA-Public Use
  Company Number: FR-ACCORD-050601

PATIENT
  Age: 48 Year
  Sex: Female

DRUGS (6)
  1. FLUOROURACIL. [Suspect]
     Active Substance: FLUOROURACIL
     Indication: PRODUCT USED FOR UNKNOWN INDICATION
  2. HERCEPTIN [Suspect]
     Active Substance: TRASTUZUMAB
     Indication: INVASIVE DUCTAL BREAST CARCINOMA
     Route: 042
     Dates: start: 20151117
  3. LEVEMIR [Concomitant]
     Active Substance: INSULIN DETEMIR
     Dosage: AS LONG-TERM TREATMENT
  4. CYCLOPHOSPHAMIDE/CYCLOPHOSPHAMIDE MONOHYDRATE [Suspect]
     Active Substance: CYCLOPHOSPHAMIDE
     Indication: PRODUCT USED FOR UNKNOWN INDICATION
  5. EPIRUBICIN [Suspect]
     Active Substance: EPIRUBICIN
     Indication: PRODUCT USED FOR UNKNOWN INDICATION
  6. DOCETAXEL ACCORD [Suspect]
     Active Substance: DOCETAXEL
     Indication: INVASIVE DUCTAL BREAST CARCINOMA
     Dosage: RECEIVED VIA INTRA CENTRAL-CATHETER ROUTE
     Dates: start: 20151117, end: 20151117

REACTIONS (8)
  - Asthenia [Recovered/Resolved]
  - Nausea [None]
  - Fall [None]
  - Ankle fracture [None]
  - Oesophagitis [Recovered/Resolved]
  - Weight decreased [Unknown]
  - Vomiting [None]
  - Malaise [None]

NARRATIVE: CASE EVENT DATE: 20151117
